FAERS Safety Report 22398089 (Version 2)
Quarter: 2023Q2

REPORT INFORMATION
  Report Type: Spontaneous
  Country: CN (occurrence: CN)
  Receive Date: 20230602
  Receipt Date: 20230630
  Transmission Date: 20230721
  Serious: Yes (Other)
  Sender: FDA-Public Use
  Company Number: CN-SUN PHARMACEUTICAL INDUSTRIES LTD-2023R1-390199

PATIENT
  Age: 61 Year
  Sex: Female

DRUGS (2)
  1. PAROXETINE [Suspect]
     Active Substance: PAROXETINE
     Indication: Depression
     Dosage: 20 MILLIGRAM, DAILY
     Route: 048
  2. PAROXETINE [Suspect]
     Active Substance: PAROXETINE
     Dosage: UNK (20 MG, ONCE EACH MORNING)
     Route: 048

REACTIONS (5)
  - Epilepsy [Recovered/Resolved]
  - Overdose [Unknown]
  - Product use issue [Unknown]
  - Fatigue [Unknown]
  - Headache [Unknown]
